FAERS Safety Report 24705490 (Version 1)
Quarter: 2024Q4

REPORT INFORMATION
  Report Type: Spontaneous
  Country: GB (occurrence: GB)
  Receive Date: 20241206
  Receipt Date: 20241206
  Transmission Date: 20250114
  Serious: Yes (Other)
  Sender: RANBAXY
  Company Number: GB-SUN PHARMACEUTICAL INDUSTRIES LTD-2024RR-481332

PATIENT
  Age: 24 Year
  Sex: Female
  Weight: 45 kg

DRUGS (5)
  1. CITALOPRAM [Suspect]
     Active Substance: CITALOPRAM
     Indication: Product used for unknown indication
     Dosage: 20 MILLIGRAM, DAILY
     Route: 065
     Dates: start: 20241113
  2. A2A SPACER [Concomitant]
     Indication: Product used for unknown indication
     Dosage: USE AS DIRECTED WITH INHALER. VISIT WWW.RIGHTBR...
     Route: 065
     Dates: start: 20221111
  3. KELHALE [Concomitant]
     Indication: Product used for unknown indication
     Dosage: 1 DOSAGE FORM, BID
     Route: 065
     Dates: start: 20221111
  4. ALBUTEROL [Concomitant]
     Active Substance: ALBUTEROL
     Indication: Product used for unknown indication
     Dosage: ASTHMA: INHALE TWO PUFFS SLOW AND STEADY, WHEN ...
     Route: 065
     Dates: start: 20221111
  5. VITALOGRAPH [Concomitant]
     Indication: Product used for unknown indication
     Dosage: USE AS DIRECTED TO MONITOR YOUR BREATHING. VISI...
     Route: 065
     Dates: start: 20231201

REACTIONS (1)
  - Lip swelling [Recovered/Resolved]

NARRATIVE: CASE EVENT DATE: 20241116
